FAERS Safety Report 18006889 (Version 8)
Quarter: 2021Q1

REPORT INFORMATION
  Report Type: Spontaneous
  Country: US (occurrence: US)
  Receive Date: 20200710
  Receipt Date: 20210122
  Transmission Date: 20210419
  Serious: Yes (Other)
  Sender: FDA-Public Use
  Company Number: US-SA-2020SA177188

PATIENT
  Age: 78 Year
  Sex: Male
  Weight: 90.7 kg

DRUGS (9)
  1. DUPIXENT [Suspect]
     Active Substance: DUPILUMAB
     Indication: DERMATITIS ATOPIC
     Dosage: 600 MG, 1X
     Route: 058
     Dates: start: 202007, end: 202007
  2. DUPIXENT [Suspect]
     Active Substance: DUPILUMAB
     Indication: ECZEMA
     Dosage: 300 MG, QOW
     Route: 058
  3. ASPIRIN [ACETYLSALICYLIC ACID] [Concomitant]
     Active Substance: ASPIRIN
  4. RAMIPRIL. [Suspect]
     Active Substance: RAMIPRIL
     Indication: HYPERTENSION
  5. MULTIVITAMINS [VITAMINS NOS] [Concomitant]
     Active Substance: VITAMINS
  6. ACETYLSALICYLIC ACID [Suspect]
     Active Substance: ASPIRIN
     Indication: BACK PAIN
     Dosage: UNK UNK, QD, 1?3 (325 MG DAILY)
     Route: 065
  7. HYDROXYZINE HCL [Concomitant]
     Active Substance: HYDROXYZINE HYDROCHLORIDE
  8. GARLIC [ALLIUM SATIVUM] [Concomitant]
     Active Substance: GARLIC
  9. MELATONIN [Concomitant]
     Active Substance: MELATONIN

REACTIONS (15)
  - Back pain [Unknown]
  - Rash pruritic [Recovering/Resolving]
  - Skin discolouration [Not Recovered/Not Resolved]
  - Haemorrhoids [Unknown]
  - Urticaria [Unknown]
  - Rash [Not Recovered/Not Resolved]
  - Oral herpes [Recovered/Resolved]
  - Pruritus [Unknown]
  - Rectal haemorrhage [Unknown]
  - Insomnia [Unknown]
  - Fatigue [Unknown]
  - Ocular hyperaemia [Unknown]
  - Cough [Recovering/Resolving]
  - Injection site haemorrhage [Recovered/Resolved]
  - Illness [Unknown]

NARRATIVE: CASE EVENT DATE: 2019
